FAERS Safety Report 7658638 (Version 18)
Quarter: 2012Q4

REPORT INFORMATION
  Report Type: 
  Country: CA (occurrence: CA)
  Receive Date: 20101105
  Receipt Date: 20121001
  Transmission Date: 20130627
  Serious: Yes (Other)
  Sender: FDA-Public Use
  Company Number: CA-ROCHE-GNE308939

PATIENT
  Age: 62 None
  Sex: Male

DRUGS (7)
  1. XOLAIR [Suspect]
     Indication: ASTHMA
     Dosage: 225 mg, Q2W
     Route: 058
     Dates: start: 20091106
  2. XOLAIR [Suspect]
     Dosage: 225 mg, Q2W
     Route: 058
     Dates: start: 20100415
  3. XOLAIR [Suspect]
     Dosage: 225 mg, Q2W
     Route: 058
     Dates: start: 20101208
  4. PREDNISONE [Concomitant]
     Indication: PRODUCT USED FOR UNKNOWN INDICATION
  5. SYMBICORT [Concomitant]
     Indication: PRODUCT USED FOR UNKNOWN INDICATION
  6. SINGULAIR [Concomitant]
     Indication: PRODUCT USED FOR UNKNOWN INDICATION
  7. ALVESCO [Concomitant]
     Indication: PRODUCT USED FOR UNKNOWN INDICATION

REACTIONS (12)
  - Atrial fibrillation [Not Recovered/Not Resolved]
  - Blood pressure increased [Unknown]
  - Lower respiratory tract infection [Recovering/Resolving]
  - Wheezing [Unknown]
  - Asthenia [Unknown]
  - Fatigue [Unknown]
  - Heart rate irregular [Unknown]
  - Heart rate increased [Unknown]
  - Heart rate decreased [Unknown]
  - Nasopharyngitis [Unknown]
  - Cough [Unknown]
  - Breath sounds abnormal [Unknown]
